FAERS Safety Report 25368896 (Version 1)
Quarter: 2025Q2

REPORT INFORMATION
  Report Type: Spontaneous
  Country: IL (occurrence: IL)
  Receive Date: 20250528
  Receipt Date: 20250528
  Transmission Date: 20250716
  Serious: Yes (Other)
  Sender: GLAND PHARMA LTD
  Company Number: IL-GLANDPHARMA-IL-2025GLNLIT01290

PATIENT
  Age: 75 Year
  Sex: Male

DRUGS (13)
  1. LEVETIRACETAM [Suspect]
     Active Substance: LEVETIRACETAM
     Indication: Partial seizures with secondary generalisation
     Route: 065
  2. PHENYTOIN [Concomitant]
     Active Substance: PHENYTOIN
     Route: 065
  3. PHENYTOIN [Concomitant]
     Active Substance: PHENYTOIN
     Indication: Epilepsia partialis continua
  4. CARBAMAZEPINE [Concomitant]
     Active Substance: CARBAMAZEPINE
     Route: 065
  5. CARBAMAZEPINE [Concomitant]
     Active Substance: CARBAMAZEPINE
     Indication: Epilepsia partialis continua
  6. CLOBAZAM [Concomitant]
     Active Substance: CLOBAZAM
     Route: 065
  7. CLOBAZAM [Concomitant]
     Active Substance: CLOBAZAM
     Indication: Epilepsia partialis continua
  8. LACOSAMIDE [Concomitant]
     Active Substance: LACOSAMIDE
     Route: 065
  9. LACOSAMIDE [Concomitant]
     Active Substance: LACOSAMIDE
     Indication: Epilepsia partialis continua
  10. VALPROIC ACID [Concomitant]
     Active Substance: VALPROIC ACID
     Route: 065
  11. VALPROIC ACID [Concomitant]
     Active Substance: VALPROIC ACID
     Indication: Epilepsia partialis continua
  12. DIAZEPAM [Concomitant]
     Active Substance: DIAZEPAM
     Route: 065
  13. DIAZEPAM [Concomitant]
     Active Substance: DIAZEPAM
     Indication: Epilepsia partialis continua

REACTIONS (2)
  - Epilepsia partialis continua [Recovered/Resolved]
  - Condition aggravated [Recovered/Resolved]
